FAERS Safety Report 6946010-1 (Version None)
Quarter: 2010Q3

REPORT INFORMATION
  Report Type: 
  Country: None (occurrence: None)
  Receive Date: 20100827
  Receipt Date: 20091208
  Transmission Date: 20110219
  Serious: No
  Sender: FDA-Public Use
  Company Number: A0834818A

PATIENT
  Sex: Male

DRUGS (1)
  1. ACYCLOVIR SODIUM [Suspect]
     Indication: PRODUCT USED FOR UNKNOWN INDICATION
     Route: 065
     Dates: start: 19930101

REACTIONS (2)
  - CONDITION AGGRAVATED [None]
  - ILL-DEFINED DISORDER [None]
